FAERS Safety Report 17706504 (Version 1)
Quarter: 2020Q2

REPORT INFORMATION
  Report Type: Spontaneous
  Country: DE (occurrence: DE)
  Receive Date: 20200424
  Receipt Date: 20200424
  Transmission Date: 20200714
  Serious: Yes (Hospitalization)
  Sender: FDA-Public Use
  Company Number: DE-009507513-2004DEU003932

PATIENT
  Age: 20 Year
  Sex: Male

DRUGS (2)
  1. COLCHICINE. [Suspect]
     Active Substance: COLCHICINE
     Dosage: 0.5 MILLIGRAM
     Dates: start: 20200226
  2. IVERMECTIN. [Suspect]
     Active Substance: IVERMECTIN
     Dosage: 200 MICROGRAM PER KILOGRAM
     Dates: start: 20200226

REACTIONS (7)
  - Vomiting [Unknown]
  - Diarrhoea [Unknown]
  - General physical health deterioration [Unknown]
  - Asthenia [Unknown]
  - Decreased appetite [Unknown]
  - Condition aggravated [Unknown]
  - Nausea [Unknown]
